FAERS Safety Report 14148854 (Version 1)
Quarter: 2017Q4

REPORT INFORMATION
  Report Type: Spontaneous
  Country: US (occurrence: US)
  Receive Date: 20171101
  Receipt Date: 20171101
  Transmission Date: 20180321
  Serious: Yes (Other)
  Sender: FDA-Public Use
  Company Number: US-PFIZER INC-2017465111

PATIENT
  Age: 30 Year
  Sex: Male
  Weight: 54.43 kg

DRUGS (2)
  1. CHANTIX [Suspect]
     Active Substance: VARENICLINE TARTRATE
     Indication: SMOKING CESSATION THERAPY
     Dosage: UNK
     Route: 048
     Dates: start: 2016
  2. HUMALOG [Concomitant]
     Active Substance: INSULIN LISPRO
     Indication: DIABETES MELLITUS
     Dosage: PUT 200 UNITS IN THE INSULIN PUMP EVERY 3 DAYS

REACTIONS (2)
  - Vision blurred [Unknown]
  - Retinal detachment [Unknown]

NARRATIVE: CASE EVENT DATE: 2017
